FAERS Safety Report 6237530-6 (Version None)
Quarter: 2009Q2

REPORT INFORMATION
  Report Type: 
  Country: None (occurrence: None)
  Receive Date: 20090619
  Receipt Date: 20090609
  Transmission Date: 20091009
  Serious: Yes (Hospitalization)
  Sender: FDA-Public Use
  Company Number: AU-AMGEN-QUU351080

PATIENT
  Age: 42 Year
  Sex: Female

DRUGS (5)
  1. NEULASTA [Suspect]
     Indication: CHEMOTHERAPY
     Route: 065
  2. NEUPOGEN [Suspect]
     Indication: CHEMOTHERAPY
     Route: 065
  3. TAXOTERE [Concomitant]
     Dates: start: 20090225
  4. CARBOPLATIN [Concomitant]
     Dates: start: 20090225
  5. HERCEPTIN [Concomitant]
     Dates: start: 20090225

REACTIONS (1)
  - FEBRILE NEUTROPENIA [None]
